FAERS Safety Report 5918154-4 (Version None)
Quarter: 2008Q4

REPORT INFORMATION
  Report Type: 
  Country: None (occurrence: None)
  Receive Date: 20081014
  Receipt Date: 20081013
  Transmission Date: 20090506
  Serious: Yes (Death)
  Sender: FDA-Public Use
  Company Number: KR-B.I. PHARMACEUTICALS,INC./RIDGEFIELD-2007-BP-17049SG

PATIENT
  Age: 49 Year
  Sex: Female

DRUGS (5)
  1. MICARDIS HCT [Suspect]
     Indication: HYPERTENSION
     Dosage: 80MG
     Dates: start: 20051001
  2. TENORMIN [Concomitant]
     Indication: HYPERTENSION
  3. NORVASC [Concomitant]
     Indication: HYPERTENSION
  4. COZZAR PLUS [Concomitant]
     Indication: HYPERTENSION
     Dates: end: 20051001
  5. RAMACE [Concomitant]
     Indication: HYPERTENSION
     Dates: start: 20051001

REACTIONS (1)
  - CEREBRAL HAEMORRHAGE [None]
